FAERS Safety Report 7086991-1 (Version None)
Quarter: 2010Q4

REPORT INFORMATION
  Report Type: 
  Country: None (occurrence: None)
  Receive Date: 20101106
  Receipt Date: 20101012
  Transmission Date: 20110411
  Serious: No
  Sender: FDA-Public Use
  Company Number: US-WYE-H18157510

PATIENT
  Sex: Female
  Weight: 74.91 kg

DRUGS (6)
  1. PREMARIN [Suspect]
     Indication: VULVOVAGINAL DRYNESS
     Dosage: 0.625MG OR 1G 1 TO 3 TIMES PER WEEK AS NEEDED
     Route: 067
  2. MULTI-VITAMINS [Concomitant]
  3. ACTONEL [Concomitant]
  4. VITAMIN E [Concomitant]
  5. SYNTHROID [Concomitant]
  6. SIMVASTATIN [Concomitant]

REACTIONS (2)
  - PRODUCT QUALITY ISSUE [None]
  - VULVOVAGINAL BURNING SENSATION [None]
